FAERS Safety Report 17304688 (Version 6)
Quarter: 2020Q1

REPORT INFORMATION
  Report Type: Report from Study
  Country: GB (occurrence: GB)
  Receive Date: 20200122
  Receipt Date: 20200325
  Transmission Date: 20200409
  Serious: Yes (Hospitalization, Other)
  Sender: FDA-Public Use
  Company Number: GB-EXELIXIS-XL18419026013

PATIENT
  Age: 64 Year
  Sex: Female
  Weight: 55 kg

DRUGS (5)
  1. ATEZOLIZUMAB. [Suspect]
     Active Substance: ATEZOLIZUMAB
     Indication: TRIPLE NEGATIVE BREAST CANCER
     Dosage: 1200 MG, Q3WEEKS
     Route: 042
     Dates: start: 20191023, end: 20191120
  2. RAMIPRIL. [Concomitant]
     Active Substance: RAMIPRIL
  3. RIVAROXABAN [Concomitant]
     Active Substance: RIVAROXABAN
  4. XL184 [Suspect]
     Active Substance: CABOZANTINIB
     Indication: TRIPLE NEGATIVE BREAST CANCER
     Dosage: 40 MG, QD
     Route: 048
     Dates: start: 20191023, end: 20191207
  5. CARVEDILOL. [Concomitant]
     Active Substance: CARVEDILOL

REACTIONS (3)
  - Hepatic enzyme increased [Recovered/Resolved]
  - Hyponatraemic seizure [Unknown]
  - Hyponatraemic seizure [Recovered/Resolved]

NARRATIVE: CASE EVENT DATE: 20191210
